FAERS Safety Report 7498715-4 (Version None)
Quarter: 2011Q2

REPORT INFORMATION
  Report Type: 
  Country: None (occurrence: None)
  Receive Date: 20110524
  Receipt Date: 20110511
  Transmission Date: 20111010
  Serious: Yes (Hospitalization)
  Sender: FDA-Public Use
  Company Number: US-JNJFOC-20110404694

PATIENT
  Sex: Male
  Weight: 99.11 kg

DRUGS (4)
  1. CORTICOSTEROIDS NOS [Concomitant]
     Route: 061
  2. INFLIXIMAB, RECOMBINANT [Suspect]
     Route: 042
     Dates: start: 20051101, end: 20091101
  3. INFLIXIMAB, RECOMBINANT [Suspect]
     Indication: PSORIASIS
     Route: 042
  4. GOLIMUMAB [Suspect]
     Indication: PSORIASIS
     Route: 058
     Dates: start: 20100201, end: 20100422

REACTIONS (1)
  - STAPHYLOCOCCAL INFECTION [None]
